FAERS Safety Report 11534954 (Version 2)
Quarter: 2015Q3

REPORT INFORMATION
  Report Type: Spontaneous
  Country: FR (occurrence: FR)
  Receive Date: 20150922
  Receipt Date: 20150925
  Transmission Date: 20151125
  Serious: Yes (Life-Threatening)
  Sender: FDA-Public Use
  Company Number: FR-009507513-1509FRA010173

PATIENT
  Age: 73 Year
  Sex: Male

DRUGS (6)
  1. KARDEGIC [Concomitant]
     Active Substance: ASPIRIN LYSINE
     Dosage: 75 MG/DAY
  2. PREVISCAN [Concomitant]
     Active Substance: FLUINDIONE
     Dosage: DOSE UNKNOWN
  3. VIRAFERONPEG [Suspect]
     Active Substance: PEGINTERFERON ALFA-2B
     Dosage: 120 MICROGRAM EVERY DAY FOR 2 MONTHS
  4. VIRAFERONPEG [Suspect]
     Active Substance: PEGINTERFERON ALFA-2B
     Dosage: 1 INJECTION PER DAY/ 150 MCG EVERY DAY FOR 3 MONTHS
  5. COTAREG [Concomitant]
     Active Substance: HYDROCHLOROTHIAZIDE\VALSARTAN
     Dosage: STRENGTH: 80/12.5 (UNITS NOT PROVIDED)
  6. REBETOL [Suspect]
     Active Substance: RIBAVIRIN
     Indication: HEPATITIS C
     Dosage: 3 CAPSULES DAILY
     Route: 048
     Dates: start: 200510, end: 200603

REACTIONS (6)
  - Fatigue [Recovered/Resolved]
  - Negative thoughts [Recovered/Resolved]
  - Parosmia [Recovered/Resolved]
  - Weight decreased [Recovered/Resolved]
  - Decreased appetite [Recovered/Resolved]
  - Vomiting [Recovered/Resolved]

NARRATIVE: CASE EVENT DATE: 200601
